FAERS Safety Report 17840848 (Version 1)
Quarter: 2020Q2

REPORT INFORMATION
  Report Type: Spontaneous
  Country: AT (occurrence: AT)
  Receive Date: 20200529
  Receipt Date: 20200529
  Transmission Date: 20200714
  Serious: Yes (Other)
  Sender: FDA-Public Use
  Company Number: AT-TEVA-2020-AT-1241397

PATIENT
  Age: 16 Year
  Sex: Female

DRUGS (5)
  1. CICLOSPORIN [Suspect]
     Active Substance: CYCLOSPORINE
     Indication: CROHN^S DISEASE
     Dosage: UNK
     Dates: start: 201110
  2. AZATHIOPRINE. [Suspect]
     Active Substance: AZATHIOPRINE
     Indication: CROHN^S DISEASE
     Dosage: UNK
     Dates: end: 201103
  3. REMICADE [Suspect]
     Active Substance: INFLIXIMAB
     Indication: CROHN^S DISEASE
     Dosage: UNK
     Route: 042
     Dates: start: 201103
  4. METHOTREXATE. [Suspect]
     Active Substance: METHOTREXATE
     Indication: CROHN^S DISEASE
     Dosage: UNK
     Dates: start: 201010, end: 201109
  5. HUMIRA [Suspect]
     Active Substance: ADALIMUMAB
     Indication: CROHN^S DISEASE
     Dosage: UNK
     Dates: start: 201108, end: 201111

REACTIONS (10)
  - Haematochezia [Not Recovered/Not Resolved]
  - Jaundice [Not Recovered/Not Resolved]
  - Arthralgia [Not Recovered/Not Resolved]
  - Gastroenteritis [Not Recovered/Not Resolved]
  - Transaminases increased [Unknown]
  - Pruritus [Not Recovered/Not Resolved]
  - Cholangitis sclerosing [Not Recovered/Not Resolved]
  - Drug ineffective [Not Recovered/Not Resolved]
  - Diarrhoea [Not Recovered/Not Resolved]
  - Colitis [Not Recovered/Not Resolved]

NARRATIVE: CASE EVENT DATE: 2011
